FAERS Safety Report 6074374-2 (Version None)
Quarter: 2009Q1

REPORT INFORMATION
  Report Type: 
  Country: None (occurrence: None)
  Receive Date: 20090211
  Receipt Date: 20090128
  Transmission Date: 20090719
  Serious: Yes (Hospitalization, Other)
  Sender: FDA-Public Use
  Company Number: JP-PFIZER INC-2009163955

PATIENT

DRUGS (4)
  1. METHYLPREDNISOLONE AND METHYLPREDNISOLONE ACETATE AND METHYLPREDNISOLO [Suspect]
     Indication: ARTERITIS
     Dosage: UNK
  2. PREDNISOLONE AND PREDNISOLONE STEAGLATE [Suspect]
     Indication: ARTERITIS
     Dosage: 45 MG, 1X/DAY
     Route: 048
  3. CYCLOPHOSPHAMIDE [Suspect]
  4. CONTRAST MEDIA [Suspect]

REACTIONS (1)
  - REVERSIBLE POSTERIOR LEUKOENCEPHALOPATHY SYNDROME [None]
